FAERS Safety Report 24928501 (Version 2)
Quarter: 2025Q1

REPORT INFORMATION
  Report Type: Report from Study
  Country: AR (occurrence: AR)
  Receive Date: 20250205
  Receipt Date: 20250222
  Transmission Date: 20250409
  Serious: Yes (Death, Other)
  Sender: IPSEN BIOPHARMACEUTICALS, INC.
  Company Number: AR-SERVIER-S25001202

PATIENT
  Age: 66 Year
  Sex: Male

DRUGS (1)
  1. ONIVYDE [Suspect]
     Active Substance: IRINOTECAN HYDROCHLORIDE
     Indication: Pancreatic carcinoma metastatic
     Route: 065

REACTIONS (3)
  - Death [Fatal]
  - Metastases to peritoneum [Unknown]
  - Disease progression [Unknown]

NARRATIVE: CASE EVENT DATE: 20241101
